FAERS Safety Report 10076591 (Version 2)
Quarter: 2014Q2

REPORT INFORMATION
  Report Type: Spontaneous
  Country: US (occurrence: US)
  Receive Date: 20140414
  Receipt Date: 20140430
  Transmission Date: 20141212
  Serious: No
  Sender: FDA-Public Use
  Company Number: US-PFIZER INC-2014102659

PATIENT
  Sex: Female

DRUGS (1)
  1. LYRICA [Suspect]
     Dosage: UNK

REACTIONS (10)
  - Nervousness [Unknown]
  - Muscle spasms [Unknown]
  - Anxiety [Unknown]
  - Antisocial personality disorder [Unknown]
  - Insomnia [Unknown]
  - Fall [Unknown]
  - Alopecia [Unknown]
  - Panic attack [Unknown]
  - Crying [Unknown]
  - Malaise [Unknown]
